FAERS Safety Report 10354629 (Version 2)
Quarter: 2014Q3

REPORT INFORMATION
  Report Type: Report from Study
  Country: JP (occurrence: JP)
  Receive Date: 20140731
  Receipt Date: 20140731
  Transmission Date: 20150326
  Serious: Yes (Death, Life-Threatening)
  Sender: FDA-Public Use
  Company Number: JP-009507513-1403JPN013398

PATIENT
  Age: 64 Year
  Sex: Female
  Weight: 38 kg

DRUGS (18)
  1. TEMOZOLOMIDE [Suspect]
     Active Substance: TEMOZOLOMIDE
     Dosage: 100 MG/M2, QD
     Route: 041
     Dates: start: 20120206, end: 20120210
  2. MUCOSTA [Concomitant]
     Active Substance: REBAMIPIDE
     Indication: PROPHYLAXIS
     Dosage: DAILY DOSAGE UNKNOWN
     Route: 048
     Dates: end: 20120627
  3. SENNA [Concomitant]
     Active Substance: SENNA LEAF\SENNOSIDES\SENNOSIDES A AND B
     Indication: PROPHYLAXIS
     Dosage: DAILY DOSE UNKNOWN
     Route: 048
     Dates: end: 20120627
  4. DEPAKENE [Concomitant]
     Active Substance: VALPROIC ACID
     Dosage: DAILY DOSAGE UNKNOWN
     Route: 048
     Dates: end: 20121004
  5. MAGMITT [Concomitant]
     Active Substance: MAGNESIUM OXIDE
     Indication: PROPHYLAXIS
     Dosage: DAILY DOSAGE UNKNOWN
     Route: 048
     Dates: end: 20121004
  6. BIO-THREE [Concomitant]
     Active Substance: HERBALS
     Indication: PROPHYLAXIS
     Dosage: DAILY DOSAGE UNKNOWN
     Route: 048
     Dates: start: 20120109, end: 20121004
  7. LANSOPRAZOLE. [Concomitant]
     Active Substance: LANSOPRAZOLE
     Indication: PROPHYLAXIS
     Dosage: DAILY DOSE UNKNOWN
     Route: 048
     Dates: start: 20120110, end: 20120808
  8. TEMOZOLOMIDE [Suspect]
     Active Substance: TEMOZOLOMIDE
     Dosage: 100 MG/M2, QD
     Route: 041
     Dates: start: 20120305, end: 20120309
  9. PRIMPERAN [Concomitant]
     Active Substance: METOCLOPRAMIDE HYDROCHLORIDE
     Indication: PROPHYLAXIS
     Dosage: DAILY DOSE UNNKNOWN
     Route: 041
     Dates: start: 20120115, end: 20120609
  10. GABAPEN [Concomitant]
     Active Substance: GABAPENTIN
     Dosage: DAILY DOSAGE UNKNOWN
     Route: 048
     Dates: end: 20121004
  11. GASPORT D [Concomitant]
     Indication: PROPHYLAXIS
     Dosage: DAILY DOSAGE UNKNOWN
     Route: 048
     Dates: start: 20120808, end: 20121004
  12. BAKTAR [Concomitant]
     Active Substance: SULFAMETHOXAZOLE\TRIMETHOPRIM
     Indication: ANTIFUNGAL PROPHYLAXIS
     Dosage: DAILY DOSAGE UNKNOWN
     Route: 048
     Dates: end: 20120817
  13. TEMOZOLOMIDE [Suspect]
     Active Substance: TEMOZOLOMIDE
     Dosage: 100 MG/M2, QD
     Route: 041
     Dates: start: 20120402, end: 20120406
  14. TEMODAL [Suspect]
     Active Substance: TEMOZOLOMIDE
     Indication: GLIOBLASTOMA MULTIFORME
     Dosage: DAILY DOSAGE UNKNOWN
     Route: 048
     Dates: start: 20071015, end: 20090515
  15. TEMODAL [Suspect]
     Active Substance: TEMOZOLOMIDE
     Dosage: DAILY DOSAGE UNKNOWN
     Route: 048
     Dates: start: 20110419, end: 20111203
  16. MYSTAN [Concomitant]
     Active Substance: CLOBAZAM
     Dosage: DAILY DOSAGE UNKNOWN
     Route: 048
     Dates: start: 20120110, end: 20121004
  17. TEMOZOLOMIDE [Suspect]
     Active Substance: TEMOZOLOMIDE
     Indication: GLIOBLASTOMA MULTIFORME
     Dosage: 100 MG/M2, QD
     Route: 041
     Dates: start: 20120110, end: 20120114
  18. SODIUM CHLORIDE. [Concomitant]
     Active Substance: SODIUM CHLORIDE
     Indication: PROPHYLAXIS
     Dosage: DAILY DOSE UNKNOWN
     Route: 048
     Dates: end: 20120627

REACTIONS (3)
  - Disease progression [Fatal]
  - Lymphocyte count decreased [Recovered/Resolved]
  - C-reactive protein increased [Recovered/Resolved]

NARRATIVE: CASE EVENT DATE: 20120424
